FAERS Safety Report 16305052 (Version 1)
Quarter: 2019Q2

REPORT INFORMATION
  Report Type: Spontaneous
  Country: US (occurrence: US)
  Receive Date: 20190510
  Receipt Date: 20190510
  Transmission Date: 20190711
  Serious: Yes (Hospitalization)
  Sender: FDA-Public Use
  Company Number: None

PATIENT
  Age: 45 Year
  Sex: Female

DRUGS (3)
  1. HUMIRA [Suspect]
     Active Substance: ADALIMUMAB
     Indication: CROHN^S DISEASE
     Dosage: ?          OTHER FREQUENCY:WEEKLY;?
     Route: 058
     Dates: start: 20171228
  2. VENTOLIN [Concomitant]
     Active Substance: ALBUTEROL SULFATE
  3. NOVOLOG [Concomitant]
     Active Substance: INSULIN ASPART

REACTIONS (2)
  - Product dose omission [None]
  - Crohn^s disease [None]

NARRATIVE: CASE EVENT DATE: 20190418
